FAERS Safety Report 8080704-2 (Version None)
Quarter: 2012Q1

REPORT INFORMATION
  Report Type: 
  Country: None (occurrence: None)
  Receive Date: 20120130
  Receipt Date: 20120124
  Transmission Date: 20120608
  Serious: Yes (Death, Hospitalization, Other)
  Sender: FDA-Public Use
  Company Number: PHEH2008US09008

PATIENT
  Sex: Male

DRUGS (36)
  1. ALPRAZOLAM [Concomitant]
  2. HUMIBID [Concomitant]
  3. ALBUTEROL [Concomitant]
  4. FRAGMIN [Concomitant]
  5. ENSURE PLUS [Concomitant]
  6. LASIX [Concomitant]
  7. RITUXAN [Concomitant]
  8. VINCRISTINE [Concomitant]
  9. PREDNISONE TAB [Concomitant]
  10. DILAUDID [Concomitant]
  11. ZOMETA [Suspect]
     Indication: PROSTATE CANCER METASTATIC
     Dosage: 4 MG, UNK
     Dates: start: 20050101, end: 20070501
  12. ZOSYN [Concomitant]
  13. PHENERGAN [Concomitant]
  14. RADIATION THERAPY [Concomitant]
  15. MITOXANTRONE [Concomitant]
  16. VENTOLIN [Concomitant]
  17. MARINOL [Concomitant]
  18. PRAVACHOL [Concomitant]
  19. MUCINEX [Concomitant]
  20. SPIRIVA [Concomitant]
  21. ZOMETA [Suspect]
     Indication: NON-HODGKIN'S LYMPHOMA
  22. SIMVASTATIN [Concomitant]
  23. ACETAMINOPHEN [Concomitant]
  24. ZOMETA [Suspect]
     Indication: BONE DISORDER
  25. COLACE [Concomitant]
  26. ASPIRIN [Concomitant]
  27. SENOKOT [Concomitant]
  28. AZITHROMYCIN [Concomitant]
  29. XANAX [Concomitant]
     Dosage: 2 MG, QD
  30. PROCRIT [Concomitant]
  31. IRON [Concomitant]
  32. VITAMIN B-12 [Concomitant]
  33. FOLIC ACID [Concomitant]
  34. AUGMENTIN '125' [Concomitant]
  35. REGLAN [Concomitant]
  36. CYTOXAN [Concomitant]

REACTIONS (100)
  - DISCOMFORT [None]
  - METASTASES TO LIVER [None]
  - RENAL CYST [None]
  - DYSPNOEA [None]
  - BUNDLE BRANCH BLOCK LEFT [None]
  - CHEST PAIN [None]
  - ACUTE RESPIRATORY FAILURE [None]
  - CELLULITIS [None]
  - BACK PAIN [None]
  - NAUSEA [None]
  - AORTIC ANEURYSM [None]
  - MYELODYSPLASTIC SYNDROME [None]
  - DIVERTICULITIS [None]
  - DILATATION VENTRICULAR [None]
  - PAIN [None]
  - NEOPLASM PROGRESSION [None]
  - NEOPLASM MALIGNANT [None]
  - SPINAL COMPRESSION FRACTURE [None]
  - PYREXIA [None]
  - PLEURISY [None]
  - FALL [None]
  - HAEMOLYTIC ANAEMIA [None]
  - EMPHYSEMA [None]
  - TRICUSPID VALVE INCOMPETENCE [None]
  - DEFORMITY [None]
  - EMOTIONAL DISTRESS [None]
  - ANXIETY [None]
  - SPINAL OSTEOARTHRITIS [None]
  - PNEUMONIA [None]
  - COUGH [None]
  - BLOOD IMMUNOGLOBULIN G DECREASED [None]
  - SYNCOPE [None]
  - EJECTION FRACTION DECREASED [None]
  - AORTIC DILATATION [None]
  - SINUS TACHYCARDIA [None]
  - ATRIOVENTRICULAR BLOCK FIRST DEGREE [None]
  - MENTAL STATUS CHANGES [None]
  - DIZZINESS [None]
  - VOMITING [None]
  - ORAL CANDIDIASIS [None]
  - TACHYPNOEA [None]
  - DEAFNESS BILATERAL [None]
  - PRURITUS [None]
  - RESPIRATORY TRACT INFECTION [None]
  - PULMONARY HYPERTENSION [None]
  - LEUKOCYTOSIS [None]
  - HYPOGAMMAGLOBULINAEMIA [None]
  - URINARY RETENTION [None]
  - ASTHENIA [None]
  - ARTHRITIS [None]
  - GASTROOESOPHAGEAL REFLUX DISEASE [None]
  - DEHYDRATION [None]
  - PAIN IN EXTREMITY [None]
  - ABDOMINAL DISTENSION [None]
  - LORDOSIS [None]
  - PANCYTOPENIA [None]
  - DYSPNOEA EXERTIONAL [None]
  - FATIGUE [None]
  - DEEP VEIN THROMBOSIS [None]
  - BRONCHIECTASIS [None]
  - TENDONITIS [None]
  - FACE INJURY [None]
  - LEFT VENTRICULAR DYSFUNCTION [None]
  - PULMONARY EMBOLISM [None]
  - METASTASES TO BONE [None]
  - METASTASES TO PANCREAS [None]
  - NEUROPATHY PERIPHERAL [None]
  - GINGIVAL ABSCESS [None]
  - HYPOXIA [None]
  - OEDEMA PERIPHERAL [None]
  - CARDIAC FAILURE CONGESTIVE [None]
  - BREATH SOUNDS ABNORMAL [None]
  - OEDEMA [None]
  - CONSTIPATION [None]
  - SCOLIOSIS [None]
  - VENOUS OCCLUSION [None]
  - SINUS ARRHYTHMIA [None]
  - DEATH [None]
  - OSTEONECROSIS OF JAW [None]
  - BONE DISORDER [None]
  - METASTASES TO SPLEEN [None]
  - CHRONIC OBSTRUCTIVE PULMONARY DISEASE [None]
  - BUNDLE BRANCH BLOCK RIGHT [None]
  - BIFASCICULAR BLOCK [None]
  - HAEMATOCHEZIA [None]
  - HYPOTENSION [None]
  - GASTROINTESTINAL HAEMORRHAGE [None]
  - TOOTH IMPACTED [None]
  - VITAMIN B12 DEFICIENCY [None]
  - BRONCHOMALACIA [None]
  - DERMATITIS CONTACT [None]
  - HYPERTENSION [None]
  - RHINORRHOEA [None]
  - RENAL FAILURE CHRONIC [None]
  - OSTEITIS [None]
  - THROMBOCYTOPENIA [None]
  - DUODENAL ULCER [None]
  - PEPTIC ULCER [None]
  - ANAEMIA MACROCYTIC [None]
  - MUSCULOSKELETAL CHEST PAIN [None]
